FAERS Safety Report 25172137 (Version 2)
Quarter: 2025Q2

REPORT INFORMATION
  Report Type: Spontaneous
  Country: CH (occurrence: CH)
  Receive Date: 20250408
  Receipt Date: 20250425
  Transmission Date: 20250716
  Serious: Yes (Disabling, Other)
  Sender: REGENERON
  Company Number: CH-BAYER-2025A045871

PATIENT
  Sex: Female

DRUGS (1)
  1. EYLEA HD [Suspect]
     Active Substance: AFLIBERCEPT
     Indication: Neovascular age-related macular degeneration
     Route: 031
     Dates: start: 20250326

REACTIONS (7)
  - Visual impairment [Not Recovered/Not Resolved]
  - Photophobia [Recovering/Resolving]
  - Blindness [Recovering/Resolving]
  - Anterior chamber inflammation [Recovering/Resolving]
  - Uveitis [Unknown]
  - Vitritis [Recovering/Resolving]
  - Eye pain [Recovering/Resolving]

NARRATIVE: CASE EVENT DATE: 20250326
